FAERS Safety Report 7016299-1 (Version None)
Quarter: 2010Q3

REPORT INFORMATION
  Report Type: 
  Country: None (occurrence: None)
  Receive Date: 20100927
  Receipt Date: 20100915
  Transmission Date: 20110219
  Serious: Yes (Other)
  Sender: FDA-Public Use
  Company Number: CA-PFIZER INC-2010113372

PATIENT
  Age: 55 Year
  Sex: Female

DRUGS (8)
  1. LYRICA [Suspect]
     Dosage: UNK
     Dates: start: 20080301, end: 20100901
  2. OXYCONTIN [Concomitant]
     Dosage: UNK
  3. SUPEUDOL [Concomitant]
     Dosage: UNK
  4. ATACAND [Concomitant]
     Dosage: UNK
  5. TIAZAC [Concomitant]
     Dosage: UNK
  6. ASAPHEN [Concomitant]
     Dosage: UNK
  7. CALCIUM [Concomitant]
     Dosage: UNK
  8. MAGNESIUM [Concomitant]
     Dosage: UNK

REACTIONS (10)
  - BLOOD CHOLESTEROL INCREASED [None]
  - DECREASED APPETITE [None]
  - DERMATITIS ALLERGIC [None]
  - DRY SKIN [None]
  - EAR PAIN [None]
  - FATIGUE [None]
  - FUNGAL INFECTION [None]
  - HYPERSENSITIVITY [None]
  - OROPHARYNGEAL PAIN [None]
  - SKIN MASS [None]
